FAERS Safety Report 25267967 (Version 1)
Quarter: 2025Q2

REPORT INFORMATION
  Report Type: Spontaneous
  Country: US (occurrence: US)
  Receive Date: 20250505
  Receipt Date: 20250505
  Transmission Date: 20250716
  Serious: No
  Sender: PADAGIS
  Company Number: US-PADAGIS-2025PAD00478

PATIENT

DRUGS (2)
  1. BISACODYL [Suspect]
     Active Substance: BISACODYL
     Indication: Constipation
     Route: 065
  2. BISACODYL [Suspect]
     Active Substance: BISACODYL
     Route: 065

REACTIONS (1)
  - Drug ineffective [Unknown]
